FAERS Safety Report 14193559 (Version 1)
Quarter: 2017Q4

REPORT INFORMATION
  Report Type: Spontaneous
  Country: US (occurrence: US)
  Receive Date: 20171115
  Receipt Date: 20171115
  Transmission Date: 20180321
  Serious: No
  Sender: FDA-Public Use
  Company Number: US-BAUSCH-BL-2017-007117

PATIENT
  Sex: Female
  Weight: 89.89 kg

DRUGS (7)
  1. ALLEGRA [Concomitant]
     Active Substance: FEXOFENADINE HYDROCHLORIDE
     Indication: PRODUCT USED FOR UNKNOWN INDICATION
     Dosage: ONE TIME DAILY AS NEEDED
     Route: 048
  2. ESCITALOPRAM [Concomitant]
     Active Substance: ESCITALOPRAM OXALATE
     Indication: PRODUCT USED FOR UNKNOWN INDICATION
     Dosage: TWO TABLETS DAILY
     Route: 048
  3. FLONASE [Concomitant]
     Active Substance: FLUTICASONE PROPIONATE
     Indication: PRODUCT USED FOR UNKNOWN INDICATION
     Dosage: 2 SPRAYS AT NIGHT PRN
  4. DIAZEPAM. [Concomitant]
     Active Substance: DIAZEPAM
     Indication: PRODUCT USED FOR UNKNOWN INDICATION
     Dosage: HALF  TABLET ONCE DAILY
     Route: 048
  5. BENADRYL [Concomitant]
     Active Substance: DIPHENHYDRAMINE HYDROCHLORIDE
     Indication: PRODUCT USED FOR UNKNOWN INDICATION
     Dosage: ONCE A DAY AS NEEDED
     Route: 048
  6. KELNOR 1/35 [Concomitant]
     Active Substance: ETHINYL ESTRADIOL\ETHYNODIOL DIACETATE
     Indication: PRODUCT USED FOR UNKNOWN INDICATION
     Dosage: 1/35 (ONE TABLET DAILY)
     Route: 048
  7. XENAZINE [Suspect]
     Active Substance: TETRABENAZINE
     Indication: TIC
     Route: 048
     Dates: start: 201403

REACTIONS (5)
  - Obsessive-compulsive disorder [Unknown]
  - Anxiety [Unknown]
  - Off label use [Unknown]
  - Condition aggravated [Unknown]
  - Somnolence [Unknown]
